FAERS Safety Report 19110762 (Version 1)
Quarter: 2021Q2

REPORT INFORMATION
  Report Type: Spontaneous
  Country: ES (occurrence: ES)
  Receive Date: 20210408
  Receipt Date: 20210408
  Transmission Date: 20210717
  Serious: Yes (Life-Threatening, Hospitalization, Other)
  Sender: FDA-Public Use
  Company Number: ES-VALIDUS PHARMACEUTICALS LLC-ES-2021VAL000458

PATIENT
  Sex: Male

DRUGS (4)
  1. VANCOMYCIN [Suspect]
     Active Substance: VANCOMYCIN
     Indication: ANTIBIOTIC THERAPY
  2. ESMOLOL [Suspect]
     Active Substance: ESMOLOL HYDROCHLORIDE
     Indication: PRODUCT USED FOR UNKNOWN INDICATION
  3. CEFOTAXIME SODIUM [Suspect]
     Active Substance: CEFOTAXIME SODIUM
     Indication: ANTIBIOTIC THERAPY
  4. HEPARIN [Suspect]
     Active Substance: HEPARIN SODIUM
     Indication: CAROTID ARTERY THROMBOSIS

REACTIONS (2)
  - Kounis syndrome [Recovered/Resolved]
  - Ischaemic hepatitis [Recovered/Resolved]
